FAERS Safety Report 4752213-7 (Version None)
Quarter: 2005Q3

REPORT INFORMATION
  Report Type: 
  Country: None (occurrence: None)
  Receive Date: 20050824
  Receipt Date: 20050824
  Transmission Date: 20060218
  Serious: Yes (Other)
  Sender: FDA-Public Use
  Company Number: None

PATIENT
  Sex: Male
  Weight: 65.3 kg

DRUGS (22)
  1. 5-FU [Suspect]
     Indication: NEOPLASM
     Dosage: SEE IMAGE
     Dates: start: 20050103, end: 20050307
  2. 5-FU [Suspect]
     Indication: NEOPLASM
     Dosage: SEE IMAGE
     Dates: start: 20050809
  3. CISPLATIN [Suspect]
     Dosage: SEE IMAGE
     Dates: start: 20050103, end: 20050816
  4. CISPLATIN [Suspect]
     Dosage: SEE IMAGE
     Dates: start: 20050809
  5. XRT RADIATION [Suspect]
     Dosage: SEE IMAGE
     Dates: start: 20050809
  6. 5-FU [Suspect]
     Dosage: SEE IMAGE
     Dates: start: 20050103, end: 20050307
  7. 5-FU [Suspect]
     Dosage: SEE IMAGE
     Dates: start: 20050809
  8. CISPLATIN [Suspect]
     Dosage: SEE IMAGE
     Dates: start: 20050103, end: 20050816
  9. CISPLATIN [Suspect]
     Dosage: SEE IMAGE
     Dates: start: 20050809
  10. XRT RADIATION [Suspect]
     Dosage: SEE IMAGE
     Dates: start: 20050809
  11. GEMCITABINE [Suspect]
     Dosage: SEE IMAGE
     Dates: start: 20050531, end: 20050816
  12. GEMCITABINE [Suspect]
     Dosage: SEE IMAGE
     Dates: start: 20050809
  13. PACLITAXEL [Suspect]
     Dosage: SEE IMAGE
     Dates: start: 20050531, end: 20050816
  14. PACLITAXEL [Suspect]
     Dosage: SEE IMAGE
     Dates: start: 20050809
  15. CISPLATIN [Suspect]
     Dosage: SEE IMAGE
     Dates: start: 20050103, end: 20050816
  16. CISPLATIN [Suspect]
     Dosage: SEE IMAGE
     Dates: start: 20050809
  17. BENADRYL [Concomitant]
  18. DECADRON [Concomitant]
  19. MAGNESIUM OXIDE [Concomitant]
  20. PROCRIT [Concomitant]
  21. ZANTAC [Concomitant]
  22. ZOFRAN [Concomitant]

REACTIONS (1)
  - HYPOMAGNESAEMIA [None]
